FAERS Safety Report 12994443 (Version 1)
Quarter: 2016Q4

REPORT INFORMATION
  Report Type: Spontaneous
  Country: PT (occurrence: PT)
  Receive Date: 20161202
  Receipt Date: 20161202
  Transmission Date: 20170207
  Serious: Yes (Other)
  Sender: FDA-Public Use
  Company Number: PT-WEST-WARD PHARMACEUTICALS CORP.-PT-H14001-16-02704

PATIENT
  Age: 74 Year
  Sex: Female

DRUGS (6)
  1. ONDANSERTON HIKMA [Suspect]
     Active Substance: ONDANSETRON
     Indication: PROPHYLAXIS OF NAUSEA AND VOMITING
     Route: 042
     Dates: start: 20160801
  2. OXALIPLATINA ACCORD [Suspect]
     Active Substance: OXALIPLATIN
     Indication: PANCREATIC NEOPLASM
     Route: 042
     Dates: start: 20160801
  3. IRINOTECANO HIKMA [Concomitant]
     Active Substance: IRINOTECAN HYDROCHLORIDE
     Indication: PANCREATIC NEOPLASM
     Route: 042
     Dates: start: 20160801
  4. FOLINATO DE CALCIO TEVA [Concomitant]
     Active Substance: LEUCOVORIN CALCIUM
     Indication: PANCREATIC NEOPLASM
     Route: 042
     Dates: start: 20160801
  5. FLUOROURACIL TEVA [Concomitant]
     Active Substance: FLUOROURACIL
     Indication: PANCREATIC NEOPLASM
     Route: 042
     Dates: start: 20160801
  6. ONDANSERTON LABESFAL [Concomitant]
     Active Substance: ONDANSETRON
     Indication: PROPHYLAXIS OF NAUSEA AND VOMITING
     Route: 048
     Dates: start: 20160801

REACTIONS (6)
  - Dysarthria [Recovered/Resolved]
  - Paraesthesia oral [Recovered/Resolved]
  - Hypertension [Recovered/Resolved]
  - Hyperhidrosis [Recovered/Resolved]
  - Drug interaction [Unknown]
  - Dizziness [Recovered/Resolved]

NARRATIVE: CASE EVENT DATE: 20160830
